FAERS Safety Report 12649077 (Version 1)
Quarter: 2016Q3

REPORT INFORMATION
  Report Type: Spontaneous
  Country: US (occurrence: US)
  Receive Date: 20160812
  Receipt Date: 20160812
  Transmission Date: 20161109
  Serious: Yes (Hospitalization, Other)
  Sender: FDA-Public Use
  Company Number: US-UNICHEM LABORATORIES LIMITED-UCM201608-000168

PATIENT
  Sex: Male
  Weight: 105.23 kg

DRUGS (20)
  1. TOPIRAMATE. [Suspect]
     Active Substance: TOPIRAMATE
     Indication: AFFECTIVE DISORDER
  2. TOPIRAMATE. [Suspect]
     Active Substance: TOPIRAMATE
  3. TIZANIDINE. [Suspect]
     Active Substance: TIZANIDINE
     Route: 048
  4. CLONAZEPAM. [Suspect]
     Active Substance: CLONAZEPAM
     Dates: start: 1995
  5. VIAGRA [Suspect]
     Active Substance: SILDENAFIL CITRATE
  6. RISPERIDONE. [Suspect]
     Active Substance: RISPERIDONE
  7. TRAZODONE [Suspect]
     Active Substance: TRAZODONE HYDROCHLORIDE
  8. GABAPENTIN. [Suspect]
     Active Substance: GABAPENTIN
  9. TIZANIDINE. [Suspect]
     Active Substance: TIZANIDINE
     Indication: MUSCLE RELAXANT THERAPY
     Dates: start: 2009
  10. TIZANIDINE. [Suspect]
     Active Substance: TIZANIDINE
  11. VRAYLAR [Suspect]
     Active Substance: CARIPRAZINE
     Route: 048
  12. TIZANIDINE. [Suspect]
     Active Substance: TIZANIDINE
  13. CLONAZEPAM. [Suspect]
     Active Substance: CLONAZEPAM
     Dates: end: 2014
  14. GABAPENTIN. [Suspect]
     Active Substance: GABAPENTIN
     Indication: FIBROMYALGIA
     Route: 048
     Dates: start: 2009
  15. RISPERIDONE. [Suspect]
     Active Substance: RISPERIDONE
     Indication: PSYCHOTIC DISORDER
     Dates: start: 1995
  16. TRAZODONE [Suspect]
     Active Substance: TRAZODONE HYDROCHLORIDE
     Indication: INSOMNIA
     Dates: start: 2015
  17. DOXEPIN [Suspect]
     Active Substance: DOXEPIN
     Indication: INSOMNIA
  18. DOXEPIN [Suspect]
     Active Substance: DOXEPIN
  19. AMOXICILLIN. [Suspect]
     Active Substance: AMOXICILLIN
     Indication: WISDOM TEETH REMOVAL
     Route: 048
     Dates: start: 20160621
  20. DOXEPIN [Suspect]
     Active Substance: DOXEPIN

REACTIONS (14)
  - Barrett^s oesophagus [Unknown]
  - Dry mouth [Unknown]
  - Feeling abnormal [Unknown]
  - Suicide attempt [Unknown]
  - Product use issue [Unknown]
  - Condition aggravated [Unknown]
  - Delirium [Unknown]
  - Erectile dysfunction [Unknown]
  - Post-traumatic stress disorder [Unknown]
  - Sleep terror [Unknown]
  - Panic attack [Unknown]
  - Insomnia [Unknown]
  - Small cell lung cancer [Unknown]
  - Hallucination [Unknown]

NARRATIVE: CASE EVENT DATE: 2014
